FAERS Safety Report 21760406 (Version 1)
Quarter: 2022Q4

REPORT INFORMATION
  Report Type: Spontaneous
  Country: US (occurrence: None)
  Receive Date: 20221220
  Receipt Date: 20221220
  Transmission Date: 20230112
  Serious: Yes (Other)
  Sender: FDA-Public Use
  Company Number: None

PATIENT
  Age: 77 Year
  Sex: Female
  Weight: 117 kg

DRUGS (13)
  1. NITROFURANTOIN MONOHYDRATE MACROCRYSTALS [Suspect]
     Active Substance: NITROFURANTOIN\NITROFURANTOIN MONOHYDRATE
     Indication: Cystitis
     Dosage: OTHER QUANTITY : 1 CAPSULE(S);?FREQUENCY : TWICE A DAY;?
     Route: 048
     Dates: start: 20221216, end: 20221217
  2. CYCLOBENZAPRINE [Concomitant]
     Active Substance: CYCLOBENZAPRINE
  3. DICLOFENAC [Concomitant]
     Active Substance: DICLOFENAC
  4. GABAPENTIN [Concomitant]
     Active Substance: GABAPENTIN
  5. Losarting Potassium [Concomitant]
  6. HYDROCHLOROTHIAZIDE [Concomitant]
     Active Substance: HYDROCHLOROTHIAZIDE
  7. PILOCARPINE [Concomitant]
     Active Substance: PILOCARPINE
  8. D-Manose [Concomitant]
  9. GABA [Concomitant]
     Active Substance: HOMEOPATHICS
  10. FLAXSEED [Concomitant]
     Active Substance: FLAX SEED
  11. DIETARY SUPPLEMENT\HERBALS\MILK THISTLE [Concomitant]
     Active Substance: DIETARY SUPPLEMENT\HERBALS\MILK THISTLE
  12. mg Glycinate [Concomitant]
  13. TYLENOL ARTHRITIS PAIN [Concomitant]
     Active Substance: ACETAMINOPHEN

REACTIONS (6)
  - Pyrexia [None]
  - Dyspnoea [None]
  - Swelling face [None]
  - Headache [None]
  - Decreased appetite [None]
  - Flatulence [None]

NARRATIVE: CASE EVENT DATE: 20221217
